FAERS Safety Report 5650051-4 (Version None)
Quarter: 2008Q1

REPORT INFORMATION
  Report Type: 
  Country: None (occurrence: None)
  Receive Date: 20080303
  Receipt Date: 20080221
  Transmission Date: 20080703
  Serious: Yes (Hospitalization, Other)
  Sender: FDA-Public Use
  Company Number: 2007BI022358

PATIENT
  Age: 62 Year
  Sex: Female

DRUGS (1)
  1. TYSABRI [Suspect]
     Indication: MULTIPLE SCLEROSIS
     Dosage: IV
     Route: 042
     Dates: start: 20070827

REACTIONS (4)
  - CRANIAL NERVE OPERATION [None]
  - NASOPHARYNGITIS [None]
  - NIGHT SWEATS [None]
  - ORAL CANDIDIASIS [None]
